FAERS Safety Report 9517169 (Version 1)
Quarter: 2013Q3

REPORT INFORMATION
  Report Type: Spontaneous
  Country: GB (occurrence: FR)
  Receive Date: 20130911
  Receipt Date: 20130911
  Transmission Date: 20140515
  Serious: Yes (Hospitalization)
  Sender: FDA-Public Use
  Company Number: GB-PFIZER INC-2013258252

PATIENT
  Age: 44 Year
  Sex: Male

DRUGS (2)
  1. ATORVASTATIN [Suspect]
     Dosage: 20 MG, UNK
  2. NITROGLYCERIN [Concomitant]
     Dosage: AS NEEDED
     Route: 060

REACTIONS (1)
  - Thrombocytopenic purpura [Recovered/Resolved]
